FAERS Safety Report 16972312 (Version 1)
Quarter: 2019Q4

REPORT INFORMATION
  Report Type: Spontaneous
  Country: US (occurrence: US)
  Receive Date: 20190912
  Receipt Date: 20190912
  Transmission Date: 20200122
  Serious: No
  Sender: FDA-Public Use
  Company Number: None

PATIENT
  Age: 24 Month

DRUGS (2)
  1. HEMANGEOL [Concomitant]
     Active Substance: PROPRANOLOL HYDROCHLORIDE
  2. VIGABATRIN POWDER 500MG PAR [Suspect]
     Active Substance: VIGABATRIN
     Indication: EPILEPSY
     Route: 048
     Dates: start: 201810

REACTIONS (2)
  - Crying [None]
  - Poor quality sleep [None]

NARRATIVE: CASE EVENT DATE: 201909
